FAERS Safety Report 8413752-0 (Version None)
Quarter: 2012Q2

REPORT INFORMATION
  Report Type: 
  Country: None (occurrence: None)
  Receive Date: 20120605
  Receipt Date: 20120523
  Transmission Date: 20120825
  Serious: No
  Sender: FDA-Public Use
  Company Number: US-ASTRAZENECA-2012SE33738

PATIENT
  Age: 36 Year
  Sex: Female
  Weight: 71.2 kg

DRUGS (3)
  1. CYMBALTA [Concomitant]
     Indication: DEPRESSION
  2. SEROQUEL [Suspect]
     Indication: BIPOLAR II DISORDER
     Dosage: 200 MG ON THE MORNING AND 600 MG ON THE EVENING
     Route: 048
     Dates: start: 20070101
  3. XANAX [Concomitant]
     Indication: PANIC ATTACK

REACTIONS (11)
  - FEELING HOT [None]
  - STRESS [None]
  - WEIGHT INCREASED [None]
  - INSOMNIA [None]
  - SCHIZOPHRENIA [None]
  - ABDOMINAL DISCOMFORT [None]
  - AGITATION [None]
  - DRUG DOSE OMISSION [None]
  - TACHYPHRENIA [None]
  - DRUG WITHDRAWAL SYNDROME [None]
  - HYPERHIDROSIS [None]
